FAERS Safety Report 8307428-8 (Version None)
Quarter: 2012Q1

REPORT INFORMATION
  Report Type: 
  Country: None (occurrence: None)
  Receive Date: 20120327
  Receipt Date: 20090820
  Transmission Date: 20120608
  Serious: Yes (Death, Other)
  Sender: FDA-Public Use
  Company Number: PHEH2009US07447

PATIENT
  Age: 73 Year
  Sex: Male
  Weight: 80.7 kg

DRUGS (1)
  1. GLEEVEC [Suspect]
     Indication: GASTROINTESTINAL STROMAL TUMOUR
     Dosage: 400 MG, QD, ORAL
     Route: 047
     Dates: start: 20010301, end: 20050701

REACTIONS (2)
  - HYPERTENSION [None]
  - NEOPLASM MALIGNANT [None]
